FAERS Safety Report 9638370 (Version 1)
Quarter: 2013Q4

REPORT INFORMATION
  Report Type: Spontaneous
  Country: JP (occurrence: JP)
  Receive Date: 20131022
  Receipt Date: 20131022
  Transmission Date: 20140711
  Serious: Yes (Other)
  Sender: FDA-Public Use
  Company Number: JP-GLAXOSMITHKLINE-B0931155A

PATIENT
  Age: 42 Year
  Sex: Female

DRUGS (6)
  1. AMERGE [Suspect]
     Indication: MIGRAINE
     Route: 048
     Dates: start: 20131007, end: 20131008
  2. MILNACIPRAN HYDROCHLORIDE [Concomitant]
     Dosage: 25MG PER DAY
     Route: 048
  3. MYSLEE [Concomitant]
     Dosage: 10MG PER DAY
     Route: 048
  4. SOLANAX [Concomitant]
     Route: 048
  5. CALONAL [Concomitant]
     Route: 065
  6. REBAMIPIDE [Concomitant]
     Route: 065

REACTIONS (2)
  - Hypothermia [Recovering/Resolving]
  - Hyperhidrosis [Recovering/Resolving]
